FAERS Safety Report 4353413-0 (Version None)
Quarter: 2004Q2

REPORT INFORMATION
  Report Type: 
  Country: None (occurrence: None)
  Receive Date: 20040505
  Receipt Date: 20040423
  Transmission Date: 20050107
  Serious: Yes (Death)
  Sender: FDA-Public Use
  Company Number: PHHO2004JP05941

PATIENT
  Age: 75 Year
  Sex: Female
  Weight: 55 kg

DRUGS (5)
  1. NEORAL [Suspect]
     Indication: APLASTIC ANAEMIA
     Dosage: 300 MG / DAY
     Route: 048
     Dates: start: 20030421, end: 20030501
  2. NEORAL [Suspect]
     Dosage: 200 MG / DAY
     Route: 048
     Dates: start: 20030502, end: 20030618
  3. LYMPHOGLOBULINE [Concomitant]
  4. ADRENAL CORTICAL EXTRACT [Concomitant]
  5. FILGRASTIM [Concomitant]

REACTIONS (1)
  - PNEUMONIA [None]
